FAERS Safety Report 6242549-5 (Version None)
Quarter: 2009Q2

REPORT INFORMATION
  Report Type: 
  Country: None (occurrence: None)
  Receive Date: 20090624
  Receipt Date: 20090623
  Transmission Date: 20091009
  Serious: Yes (Death, Hospitalization, Other)
  Sender: FDA-Public Use
  Company Number: US-BAYER-200713462BWH

PATIENT
  Age: 65 Year
  Sex: Male
  Weight: 119 kg

DRUGS (8)
  1. NEXAVAR [Suspect]
     Indication: HEPATIC NEOPLASM MALIGNANT
     Dosage: TOTAL DAILY DOSE: 800 MG  UNIT DOSE: 200 MG
     Route: 048
     Dates: start: 20071121, end: 20080112
  2. NEXAVAR [Suspect]
     Dosage: TOTAL DAILY DOSE: 400 MG  UNIT DOSE: 200 MG
     Route: 048
     Dates: start: 20071019, end: 20071121
  3. NEXAVAR [Suspect]
     Dosage: TOTAL DAILY DOSE: 800 MG  UNIT DOSE: 200 MG
     Route: 048
     Dates: start: 20071001, end: 20071009
  4. NEXAVAR [Suspect]
     Dosage: TOTAL DAILY DOSE: 800 MG  UNIT DOSE: 200 MG
     Route: 048
     Dates: start: 20070923
  5. LASIX [Concomitant]
     Dosage: TOTAL DAILY DOSE: 40 MG
  6. SPIRONOLACTONE [Concomitant]
     Dosage: TOTAL DAILY DOSE: 100 MG
  7. NADOLOL [Concomitant]
     Dosage: TOTAL DAILY DOSE: 40 MG
  8. METFORMIN HCL [Concomitant]
     Dosage: TOTAL DAILY DOSE: 500 MG

REACTIONS (4)
  - ABDOMINAL PAIN [None]
  - ENCEPHALOPATHY [None]
  - HEPATIC ENCEPHALOPATHY [None]
  - HEPATIC FAILURE [None]
